FAERS Safety Report 13712746 (Version 1)
Quarter: 2017Q3

REPORT INFORMATION
  Report Type: Spontaneous
  Country: CH (occurrence: CH)
  Receive Date: 20170703
  Receipt Date: 20170703
  Transmission Date: 20171127
  Serious: Yes (Hospitalization)
  Sender: FDA-Public Use
  Company Number: CH-TEVA-780592ISR

PATIENT
  Age: 85 Year
  Sex: Female

DRUGS (5)
  1. OLFEN-75 RETARD DEPOTABS [Suspect]
     Active Substance: DICLOFENAC SODIUM
     Route: 048
     Dates: end: 20170517
  2. NEBILET TABLETTEN [Concomitant]
     Route: 048
  3. METFORMIN-MEPHA 500 LACTAB [Concomitant]
     Active Substance: METFORMIN HYDROCHLORIDE
     Route: 048
  4. ASPIRIN CARDIO 100 FILMTABLETTEN [Suspect]
     Active Substance: ASPIRIN
     Route: 048
     Dates: end: 20170517
  5. ENALAPRIL-MEPHA [Concomitant]
     Active Substance: ENALAPRIL
     Route: 048

REACTIONS (5)
  - Haematemesis [Recovered/Resolved]
  - Anaemia [Recovering/Resolving]
  - Shock haemorrhagic [Recovering/Resolving]
  - Gastrointestinal haemorrhage [Recovering/Resolving]
  - Melaena [Recovered/Resolved]

NARRATIVE: CASE EVENT DATE: 20170517
